FAERS Safety Report 5169917-7 (Version None)
Quarter: 2006Q4

REPORT INFORMATION
  Report Type: 
  Country: None (occurrence: None)
  Receive Date: 20061212
  Receipt Date: 20061130
  Transmission Date: 20070319
  Serious: Yes (Death)
  Sender: FDA-Public Use
  Company Number: US-ELI_LILLY_AND_COMPANY-US200612000088

PATIENT
  Age: 65 Year
  Sex: Male
  Weight: 79.365 kg

DRUGS (4)
  1. ZYPREXA [Suspect]
     Indication: DEPRESSION
     Dosage: 7.5 MG, UNK
     Dates: start: 20050625, end: 20050926
  2. RISPERIDONE [Concomitant]
     Dates: start: 20050101
  3. ELAVIL [Concomitant]
     Dates: start: 20050101
  4. FUROSEMIDE [Concomitant]
     Dates: start: 20050101

REACTIONS (2)
  - DEATH [None]
  - DIABETES MELLITUS [None]
